FAERS Safety Report 8983666 (Version 3)
Quarter: 2014Q2

REPORT INFORMATION
  Report Type: Spontaneous
  Country: US (occurrence: US)
  Receive Date: 20121224
  Receipt Date: 20131108
  Transmission Date: 20141212
  Serious: Yes (Hospitalization, Other)
  Sender: FDA-Public Use
  Company Number: US-JNJCP-30000137754

PATIENT
  Age: 18 Year
  Sex: Male
  Weight: 66 kg

DRUGS (16)
  1. NEUTROGENA SPECTRUM ADVANCED SUNBLOCK LOTION SPF 100 WITH HELIOPLEX [Suspect]
     Indication: PROPHYLAXIS
     Dosage: LIGHT COATING ON FACE, ONCE A DAY ON WEEKENDS
     Route: 061
     Dates: start: 201105
  2. NO DRUG NAME [Concomitant]
  3. NO DRUG NAME [Concomitant]
  4. NO DRUG NAME [Concomitant]
  5. NO DRUG NAME [Concomitant]
  6. NO DRUG NAME [Concomitant]
  7. NO DRUG NAME [Concomitant]
  8. NO DRUG NAME [Concomitant]
  9. NO DRUG NAME [Concomitant]
  10. NO DRUG NAME [Concomitant]
  11. NO DRUG NAME [Concomitant]
  12. NO DRUG NAME [Concomitant]
  13. NO DRUG NAME [Concomitant]
  14. NO DRUG NAME [Concomitant]
  15. NO DRUG NAME [Concomitant]
  16. NO DRUG NAME [Concomitant]

REACTIONS (1)
  - Hypersensitivity [Recovered/Resolved]
